FAERS Safety Report 12105787 (Version 1)
Quarter: 2016Q1

REPORT INFORMATION
  Report Type: Spontaneous
  Country: ES (occurrence: ES)
  Receive Date: 20160223
  Receipt Date: 20160223
  Transmission Date: 20160526
  Serious: Yes (Life-Threatening, Hospitalization, Other)
  Sender: FDA-Public Use
  Company Number: ES-JNJFOC-20160214001

PATIENT
  Age: 58 Year
  Sex: Female

DRUGS (2)
  1. SIMPONI [Suspect]
     Active Substance: GOLIMUMAB
     Indication: PSORIATIC ARTHROPATHY
     Dosage: CADA 30 DIAS
     Route: 058
     Dates: start: 20130418, end: 20160111
  2. METHOTREXATE [Suspect]
     Active Substance: METHOTREXATE
     Indication: PSORIATIC ARTHROPATHY
     Dosage: 12.5 (UNIT UNSPECIFIED)
     Route: 058
     Dates: start: 20130118, end: 20160111

REACTIONS (6)
  - Urinary tract infection [Recovering/Resolving]
  - Pyonephrosis [Recovering/Resolving]
  - Acute kidney injury [Recovering/Resolving]
  - Klebsiella infection [Recovering/Resolving]
  - Thrombocytopenia [Not Recovered/Not Resolved]
  - Septic shock [Recovering/Resolving]

NARRATIVE: CASE EVENT DATE: 201601
